FAERS Safety Report 7348000-6 (Version None)
Quarter: 2011Q1

REPORT INFORMATION
  Report Type: 
  Country: None (occurrence: None)
  Receive Date: 20110311
  Receipt Date: 20110310
  Transmission Date: 20110831
  Serious: Yes (Death, Other)
  Sender: FDA-Public Use
  Company Number: PHFR2010GB05691

PATIENT
  Sex: Female

DRUGS (3)
  1. IMATINIB MESYLATE [Suspect]
     Indication: GASTROINTESTINAL STROMAL TUMOUR
     Dosage: 400 MG, QD
     Route: 048
     Dates: start: 20081001, end: 20100101
  2. IMATINIB MESYLATE [Suspect]
     Dosage: 800 MG, QD
     Route: 048
     Dates: start: 20100101, end: 20100801
  3. SUNITINIB [Suspect]
     Indication: GASTROINTESTINAL STROMAL TUMOUR
     Dosage: 50 MG

REACTIONS (7)
  - NEOPLASM MALIGNANT [None]
  - METASTASES TO LIVER [None]
  - LUNG NEOPLASM [None]
  - ASCITES [None]
  - GENE MUTATION IDENTIFICATION TEST POSITIVE [None]
  - DRUG RESISTANCE [None]
  - GASTROINTESTINAL STROMAL TUMOUR [None]
